FAERS Safety Report 4782299-5 (Version None)
Quarter: 2005Q3

REPORT INFORMATION
  Report Type: 
  Country: None (occurrence: None)
  Receive Date: 20050914
  Receipt Date: 20050511
  Transmission Date: 20060218
  Serious: Yes (Life-Threatening, Hospitalization)
  Sender: FDA-Public Use
  Company Number: 163-20785-05050196

PATIENT
  Age: 51 Year
  Sex: Male

DRUGS (5)
  1. THALOMID [Suspect]
     Indication: RENAL CELL CARCINOMA STAGE UNSPECIFIED
     Dosage: 100 MG TITRATED UP TO 300 MG, ORAL
     Route: 048
     Dates: start: 20050309, end: 20050325
  2. PROLEUKIN [Suspect]
     Indication: RENAL CELL CARCINOMA STAGE UNSPECIFIED
     Dosage: 52.2 IUM, Q8H, INTRAVENOUS
     Route: 042
     Dates: start: 20050209, end: 20050214
  3. ZOMETA [Concomitant]
  4. LIPITOR [Concomitant]
  5. DOCUSATE SODIUM (DOCUSATE SODIUM) [Concomitant]

REACTIONS (6)
  - CONSTIPATION [None]
  - DEEP VEIN THROMBOSIS [None]
  - MUSCULOSKELETAL STIFFNESS [None]
  - OEDEMA PERIPHERAL [None]
  - PAIN IN EXTREMITY [None]
  - PYREXIA [None]
